FAERS Safety Report 9102990 (Version 4)
Quarter: 2013Q1

REPORT INFORMATION
  Report Type: Spontaneous
  Country: US (occurrence: US)
  Receive Date: 20130219
  Receipt Date: 20130329
  Transmission Date: 20140127
  Serious: Yes (Disabling, Other)
  Sender: FDA-Public Use
  Company Number: US-PFIZER INC-2013061575

PATIENT
  Age: 49 Year
  Sex: Female
  Weight: 74.83 kg

DRUGS (6)
  1. CHANTIX [Suspect]
     Indication: SMOKING CESSATION THERAPY
     Dosage: 0.5 MG, 1X/DAY
     Route: 048
     Dates: start: 2006
  2. CHANTIX [Interacting]
     Dosage: UNK
     Route: 048
     Dates: start: 201303
  3. OXYCODONE [Concomitant]
     Dosage: UNK
     Route: 048
  4. HYDROCODONE [Concomitant]
     Dosage: UNK
     Route: 048
  5. CYMBALTA [Concomitant]
     Indication: ANXIETY
     Dosage: UNK
  6. MORPHINE [Concomitant]
     Indication: BACK DISORDER
     Dosage: 1 DF, 1X/DAY

REACTIONS (10)
  - Musculoskeletal disorder [Unknown]
  - Non-Hodgkin^s lymphoma [Recovering/Resolving]
  - Nerve injury [Unknown]
  - Peroneal nerve palsy [Unknown]
  - Pain [Unknown]
  - Chronic obstructive pulmonary disease [Unknown]
  - Uterine disorder [Unknown]
  - Chills [Recovered/Resolved]
  - Nausea [Not Recovered/Not Resolved]
  - Drug interaction [Unknown]
